FAERS Safety Report 10557426 (Version 1)
Quarter: 2014Q4

REPORT INFORMATION
  Report Type: Spontaneous
  Country: US (occurrence: None)
  Receive Date: 20141030
  Receipt Date: 20141030
  Transmission Date: 20150529
  Serious: No
  Sender: FDA-Public Use
  Company Number: None

PATIENT
  Age: 37 Year
  Sex: Female
  Weight: 56.7 kg

DRUGS (1)
  1. ORTHO EVRA [Suspect]
     Active Substance: ETHINYL ESTRADIOL\NORELGESTROMIN
     Dosage: 4 PATCHES?ONCE PER WEEK?APPLIED AS MEDICATED PATCH TO SKIN
     Route: 061

REACTIONS (7)
  - Application site pruritus [None]
  - Product adhesion issue [None]
  - Application site erythema [None]
  - Skin irritation [None]
  - Pruritus [None]
  - Application site swelling [None]
  - Application site irritation [None]

NARRATIVE: CASE EVENT DATE: 20141029
